FAERS Safety Report 11861211 (Version 1)
Quarter: 2015Q4

REPORT INFORMATION
  Report Type: Spontaneous
  Country: US (occurrence: US)
  Receive Date: 20151222
  Receipt Date: 20151222
  Transmission Date: 20160305
  Serious: Yes (Other)
  Sender: FDA-Public Use
  Company Number: US-ASTELLAS-2015US047905

PATIENT
  Sex: Female

DRUGS (4)
  1. TARCEVA [Suspect]
     Active Substance: ERLOTINIB HYDROCHLORIDE
     Dosage: UNK UNK, ONCE DAILY
     Route: 048
     Dates: start: 20150830
  2. TARCEVA [Suspect]
     Active Substance: ERLOTINIB HYDROCHLORIDE
     Route: 048
     Dates: start: 20150801
  3. TARCEVA [Suspect]
     Active Substance: ERLOTINIB HYDROCHLORIDE
     Indication: TRACHEAL CANCER
     Route: 048
     Dates: start: 20130801
  4. TARCEVA [Suspect]
     Active Substance: ERLOTINIB HYDROCHLORIDE
     Dosage: UNK, EVERY OTHER DAY
     Route: 065

REACTIONS (8)
  - Fatigue [Unknown]
  - Intentional product misuse [Unknown]
  - Parosmia [Unknown]
  - Dysgeusia [Unknown]
  - Diarrhoea [Unknown]
  - Asthenia [Unknown]
  - Rectal haemorrhage [Unknown]
  - Decreased appetite [Unknown]
